FAERS Safety Report 6136740-6 (Version None)
Quarter: 2009Q1

REPORT INFORMATION
  Report Type: 
  Country: None (occurrence: None)
  Receive Date: 20090330
  Receipt Date: 20090320
  Transmission Date: 20090719
  Serious: Yes (Hospitalization)
  Sender: FDA-Public Use
  Company Number: PT-WYE-H08707109

PATIENT
  Sex: Male

DRUGS (13)
  1. CORDARONE [Suspect]
     Indication: ATRIAL FIBRILLATION
     Dosage: 600 MG IN 50 ML
     Route: 042
     Dates: start: 20090311, end: 20090313
  2. SPIRONOLACTONE [Concomitant]
  3. POTASSIUM CHLORIDE [Concomitant]
  4. IRON [Concomitant]
  5. ESOMEPRAZOLE [Concomitant]
  6. ENOXAPARIN SODIUM [Concomitant]
  7. FUROSEMIDE [Concomitant]
  8. LACTULOSE [Concomitant]
  9. HALOPERIDOL [Concomitant]
  10. IPRATROPIUM BROMIDE AND ALBUTEROL SULFATE [Concomitant]
  11. ACETYLCYSTEINE [Concomitant]
  12. CARVEDILOL [Concomitant]
  13. INSULIN [Concomitant]

REACTIONS (2)
  - HEPATOTOXICITY [None]
  - PRODUCT QUALITY ISSUE [None]
